FAERS Safety Report 11050335 (Version 2)
Quarter: 2015Q2

REPORT INFORMATION
  Report Type: Report from Study
  Country: DE (occurrence: DE)
  Receive Date: 20150421
  Receipt Date: 20150515
  Transmission Date: 20150821
  Serious: Yes (Other)
  Sender: FDA-Public Use
  Company Number: DE-PFIZER INC-2015112865

PATIENT
  Age: 45 Year
  Sex: Female
  Weight: 70.98 kg

DRUGS (9)
  1. CYTARABINE. [Suspect]
     Active Substance: CYTARABINE
     Indication: ACUTE MYELOID LEUKAEMIA
     Dosage: 180 MG, DAILY
     Dates: start: 20150120
  2. PEGFILGRASTIM [Concomitant]
     Active Substance: PEGFILGRASTIM
     Indication: ACUTE MYELOID LEUKAEMIA
     Dosage: 30 MG, DAILY
     Dates: start: 20150302, end: 20150302
  3. IDARUBICIN HCL [Suspect]
     Active Substance: IDARUBICIN HYDROCHLORIDE
     Indication: ACUTE MYELOID LEUKAEMIA
     Dosage: 22 MG, DAILY
     Dates: start: 20150120
  4. ATRA [Concomitant]
     Active Substance: TRETINOIN
     Dosage: 27 MG, DAILY
     Dates: start: 20150125, end: 20150209
  5. GEMTUZUMAB OZOGAMICIN [Suspect]
     Active Substance: GEMTUZUMAB OZOGAMICIN
     Indication: ACUTE MYELOID LEUKAEMIA
     Dosage: 5.4 MG, DAILY
     Dates: start: 20150122
  6. ATRA [Concomitant]
     Active Substance: TRETINOIN
     Indication: ACUTE MYELOID LEUKAEMIA
     Dosage: 80 MG, DAILY
     Dates: start: 20150125, end: 20150127
  7. PEGFILGRASTIM [Concomitant]
     Active Substance: PEGFILGRASTIM
     Dosage: 30 MG, DAILY
     Dates: start: 20150310, end: 20150310
  8. ETOPOSIDE. [Suspect]
     Active Substance: ETOPOSIDE
     Indication: ACUTE MYELOID LEUKAEMIA
     Dosage: 180 MG, DAILY
     Dates: start: 20150120
  9. PEGFILGRASTIM [Concomitant]
     Active Substance: PEGFILGRASTIM
     Dosage: 30 MG, DAILY
     Dates: start: 20150306, end: 20150306

REACTIONS (2)
  - Atypical pneumonia [Recovered/Resolved]
  - Staphylococcal infection [Recovered/Resolved]

NARRATIVE: CASE EVENT DATE: 20150212
